FAERS Safety Report 4666734-9 (Version None)
Quarter: 2005Q2

REPORT INFORMATION
  Report Type: 
  Country: None (occurrence: None)
  Receive Date: 20050519
  Receipt Date: 20040329
  Transmission Date: 20051028
  Serious: Yes (Disabling, Other)
  Sender: FDA-Public Use
  Company Number: PHEH2004US03576

PATIENT
  Age: 62 Year
  Sex: Male

DRUGS (5)
  1. CHEMOTHERAPEUTICS,OTHER [Concomitant]
  2. SYNTHROID [Concomitant]
     Dosage: .75 MG, QD
     Route: 048
  3. TIMOLOL MALEATE [Concomitant]
     Route: 048
  4. DEPAKOTE [Concomitant]
     Dosage: UNK, UNK
     Route: 048
  5. AREDIA [Suspect]
     Indication: MULTIPLE MYELOMA
     Dosage: 90 MG, QMO
     Dates: start: 20010101, end: 20030101

REACTIONS (5)
  - ASEPTIC NECROSIS BONE [None]
  - BONE DISORDER [None]
  - INFECTION [None]
  - PAIN [None]
  - SEQUESTRECTOMY [None]
